FAERS Safety Report 8533594-5 (Version None)
Quarter: 2012Q3

REPORT INFORMATION
  Report Type: 
  Country: None (occurrence: None)
  Receive Date: 20120724
  Receipt Date: 20120713
  Transmission Date: 20120928
  Serious: Yes (Hospitalization)
  Sender: FDA-Public Use
  Company Number: US-JNJFOC-20120709505

PATIENT
  Sex: Male
  Weight: 80.74 kg

DRUGS (2)
  1. PALIPERIDONE PALMITATE [Suspect]
     Indication: SCHIZOPHRENIA
     Route: 030
     Dates: start: 20120628
  2. PALIPERIDONE PALMITATE [Suspect]
     Route: 030
     Dates: start: 20120706

REACTIONS (1)
  - SUICIDAL IDEATION [None]
